FAERS Safety Report 7620355-4 (Version None)
Quarter: 2011Q3

REPORT INFORMATION
  Report Type: 
  Country: None (occurrence: None)
  Receive Date: 20110718
  Receipt Date: 20110718
  Transmission Date: 20111222
  Serious: No
  Sender: FDA-Public Use
  Company Number: None

PATIENT
  Age: 35 Year
  Sex: Female
  Weight: 54.431 kg

DRUGS (1)
  1. TYLENOL-500 [Suspect]
     Indication: HEADACHE
     Dosage: 1000 MG
     Dates: start: 20110713, end: 20110713

REACTIONS (1)
  - GASTROINTESTINAL DISORDER [None]
